FAERS Safety Report 12538545 (Version 1)
Quarter: 2016Q3

REPORT INFORMATION
  Report Type: Report from Study
  Country: US (occurrence: US)
  Receive Date: 20160708
  Receipt Date: 20160708
  Transmission Date: 20161109
  Serious: No
  Sender: FDA-Public Use
  Company Number: US-AMGEN-USASL2016087244

PATIENT
  Age: 16 Year
  Sex: Female

DRUGS (1)
  1. ENBREL [Suspect]
     Active Substance: ETANERCEPT
     Indication: PRODUCT USED FOR UNKNOWN INDICATION
     Dosage: UNK UNK, UNK
     Route: 065

REACTIONS (6)
  - Blood calcium abnormal [Unknown]
  - Anaemia [Unknown]
  - Mean cell volume abnormal [Unknown]
  - Fatigue [Unknown]
  - White blood cell count abnormal [Unknown]
  - Peripheral vascular disorder [Unknown]
